FAERS Safety Report 15208554 (Version 3)
Quarter: 2018Q3

REPORT INFORMATION
  Report Type: Spontaneous
  Country: US (occurrence: US)
  Receive Date: 20180727
  Receipt Date: 20180801
  Transmission Date: 20181010
  Serious: Yes (Hospitalization, Other)
  Sender: FDA-Public Use
  Company Number: US-PFIZER INC-2018301115

PATIENT
  Age: 60 Year
  Sex: Female

DRUGS (3)
  1. XANAX [Concomitant]
     Active Substance: ALPRAZOLAM
     Indication: ANXIETY
     Dosage: UNK
  2. XANAX [Concomitant]
     Active Substance: ALPRAZOLAM
     Indication: INSOMNIA
  3. FLAGYL [Suspect]
     Active Substance: METRONIDAZOLE\METRONIDAZOLE HYDROCHLORIDE
     Indication: BACTERIAL INFECTION
     Dosage: 500 MG, SINGLE
     Route: 048
     Dates: start: 20180718

REACTIONS (28)
  - Muscle injury [Unknown]
  - Insomnia [Unknown]
  - Condition aggravated [Unknown]
  - Confusional state [Unknown]
  - Food intolerance [Unknown]
  - Nervous system disorder [Unknown]
  - Gait inability [Unknown]
  - Rash [Unknown]
  - Myalgia [Unknown]
  - Paraesthesia [Unknown]
  - Diarrhoea [Unknown]
  - Lip swelling [Unknown]
  - Muscle disorder [Unknown]
  - Pain [Unknown]
  - Asthenia [Unknown]
  - Food interaction [Unknown]
  - Weight decreased [Unknown]
  - Paraesthesia [Unknown]
  - Fear [Unknown]
  - Product quality issue [Unknown]
  - Swollen tongue [Unknown]
  - Hypertension [Unknown]
  - Hypersensitivity [Unknown]
  - Erythema [Unknown]
  - Mental disorder [Unknown]
  - Arthropathy [Unknown]
  - Dysgeusia [Unknown]
  - Fatigue [Unknown]

NARRATIVE: CASE EVENT DATE: 20180718
